FAERS Safety Report 6609046-6 (Version None)
Quarter: 2010Q1

REPORT INFORMATION
  Report Type: 
  Country: None (occurrence: None)
  Receive Date: 20100301
  Receipt Date: 20100218
  Transmission Date: 20100710
  Serious: Yes (Death)
  Sender: FDA-Public Use
  Company Number: US-ELI_LILLY_AND_COMPANY-US201002005894

PATIENT
  Age: 34 Year
  Sex: Female

DRUGS (4)
  1. OLANZAPINE [Suspect]
  2. FENTANYL-100 [Concomitant]
     Route: 062
  3. ALPRAZOLAM [Concomitant]
  4. MIRTAZAPINE [Concomitant]

REACTIONS (1)
  - COMPLETED SUICIDE [None]
